FAERS Safety Report 8160344-7 (Version None)
Quarter: 2012Q1

REPORT INFORMATION
  Report Type: 
  Country: None (occurrence: None)
  Receive Date: 20120223
  Receipt Date: 20120217
  Transmission Date: 20120608
  Serious: Yes (Other)
  Sender: FDA-Public Use
  Company Number: DE-AMGEN-DEUSP2011061493

PATIENT
  Age: 58 Year
  Sex: Male
  Weight: 99.5 kg

DRUGS (26)
  1. PROTAPHANE [Concomitant]
     Dosage: UNK UNK, BID
  2. FENISTIL [Concomitant]
  3. CALCIUMACETAT NEFRO [Concomitant]
     Dosage: 500 MG, TID
  4. LAXOBERAL [Concomitant]
     Dosage: UNK UNK, PRN
  5. RASILEZ [Concomitant]
     Dosage: 300 MG, QD
  6. NITROLINGUAL PUMPSPRAY [Concomitant]
     Dosage: UNK UNK, PRN
  7. CALCIUM [Concomitant]
  8. HUMALOG [Concomitant]
     Dosage: UNK UNK, PRN
  9. METOPROLOL [Concomitant]
     Dosage: 50 MG, BID
  10. FERRLECIT [Concomitant]
     Dosage: 40 MG, QWK
  11. VITAMIN D [Concomitant]
     Indication: HYPOCALCAEMIA
     Dosage: UNK
  12. PROLIA [Suspect]
     Indication: OSTEOPOROSIS
     Dosage: 60 MG, UNK
     Route: 058
     Dates: start: 20110901
  13. ACETAMINOPHEN [Concomitant]
     Dosage: 500 MG, PRN
  14. DOXAZOSIN CT ARZNEIMITTEL [Concomitant]
  15. ASS AL [Concomitant]
     Indication: HAEMODILUTION
     Dosage: UNK UNK, QD
  16. MCP HEXAL [Concomitant]
     Dosage: UNK UNK, TID
  17. VITARENAL [Concomitant]
     Dosage: UNK
  18. L THYROXIN HENNING [Concomitant]
     Indication: HYPOTHYROIDISM
     Dosage: 175 MUG, QD
  19. FOSRENOL [Concomitant]
     Dosage: 750 MG, TID
  20. DELMUNO [Concomitant]
     Indication: BLOOD PRESSURE
     Dosage: UNK UNK, BID
  21. DEKRISTOL [Concomitant]
     Dosage: UNK UNK, QWK
  22. NOVAMINSULFON CT [Concomitant]
     Dosage: UNK UNK, PRN
  23. BIFITERAL [Concomitant]
     Dosage: UNK UNK, PRN
  24. GABAPENTIN HEXAL [Concomitant]
     Indication: POLYNEUROPATHY
     Dosage: 100 MG, TID
  25. BONDIOL [Concomitant]
     Dosage: UNK UNK, BID
  26. SILAPO [Concomitant]
     Dosage: 0.9 ML, 3 TIMES/WK

REACTIONS (2)
  - HYPOCALCAEMIA [None]
  - BLOOD PARATHYROID HORMONE INCREASED [None]
